FAERS Safety Report 8453063-0 (Version None)
Quarter: 2012Q2

REPORT INFORMATION
  Report Type: 
  Country: None (occurrence: None)
  Receive Date: 20120620
  Receipt Date: 20120612
  Transmission Date: 20120825
  Serious: Yes (Other)
  Sender: FDA-Public Use
  Company Number: CHPA2012NL012462

PATIENT
  Sex: Female
  Weight: 61 kg

DRUGS (8)
  1. SCOPOLAMINE [Suspect]
     Indication: MOTION SICKNESS
     Dosage: 1 DF, UNK
     Route: 062
     Dates: start: 20120527
  2. SCOPOLAMINE [Suspect]
     Dosage: 1 DF, UNK
     Route: 062
     Dates: start: 20120602, end: 20120603
  3. EBASTINE [Concomitant]
     Dosage: 10 MG, QD
     Dates: start: 20120427
  4. PROLIA [Concomitant]
     Dosage: 60 MG, Q6MO
     Dates: start: 20120427
  5. ZOLPIDEM TARTRATE [Suspect]
     Dosage: 10 MG, QD
     Dates: start: 20120527, end: 20120603
  6. CALCIUM ^SANDOZ^ [Concomitant]
     Dosage: 500 MG, QD
     Dates: start: 20111024
  7. HYDROCHLOROTHIAZIDE [Concomitant]
     Dosage: 25 MG, QD
     Dates: start: 20060130
  8. METOPROLOL SUCCINATE [Concomitant]
     Dosage: 25 MG, QD
     Dates: start: 20060130

REACTIONS (9)
  - COORDINATION ABNORMAL [None]
  - AGITATION [None]
  - DYSARTHRIA [None]
  - ATRIAL FIBRILLATION [None]
  - CONFUSIONAL STATE [None]
  - FALL [None]
  - ANGER [None]
  - TRANSIENT ISCHAEMIC ATTACK [None]
  - HALLUCINATION [None]
